FAERS Safety Report 14503496 (Version 1)
Quarter: 2018Q1

REPORT INFORMATION
  Report Type: Spontaneous
  Country: US (occurrence: US)
  Receive Date: 20180208
  Receipt Date: 20180208
  Transmission Date: 20180509
  Serious: No
  Sender: FDA-Public Use
  Company Number: US-JNJFOC-20171124935

PATIENT
  Age: 43 Year
  Sex: Female
  Weight: 58.97 kg

DRUGS (1)
  1. TYLENOL REGULAR STRENGTH [Suspect]
     Active Substance: ACETAMINOPHEN
     Indication: MIGRAINE
     Route: 048

REACTIONS (3)
  - Foreign body in respiratory tract [Recovered/Resolved]
  - Product formulation issue [Unknown]
  - Incorrect dose administered [Unknown]
